FAERS Safety Report 10434676 (Version 1)
Quarter: 2014Q2

REPORT INFORMATION
  Report Type: Spontaneous
  Country: US (occurrence: None)
  Receive Date: 20140514
  Receipt Date: 20140514
  Transmission Date: 20141212
  Serious: Yes (Other)
  Sender: FDA-Public Use
  Company Number: 048893U

PATIENT
  Sex: Female

DRUGS (1)
  1. CIMZIA [Suspect]
     Indication: RHEUMATOID ARTHRITIS
     Dosage: (SUBCUTANEOUS), (SUBCUTANEOUS)?
     Dates: start: 201210, end: 201211

REACTIONS (3)
  - Caesarean section [None]
  - Drug ineffective [None]
  - Pregnancy [None]
